FAERS Safety Report 5451036-3 (Version None)
Quarter: 2007Q3

REPORT INFORMATION
  Report Type: 
  Country: None (occurrence: None)
  Receive Date: 20070802
  Receipt Date: 20070220
  Transmission Date: 20080115
  Serious: Yes (Other)
  Sender: FDA-Public Use
  Company Number: 34544

PATIENT
  Age: 71 Year
  Sex: Male

DRUGS (1)
  1. DACARBAZINE [Suspect]

REACTIONS (1)
  - BACK PAIN [None]
